FAERS Safety Report 9603391 (Version 1)
Quarter: 2013Q4

REPORT INFORMATION
  Report Type: Spontaneous
  Country: JP (occurrence: JP)
  Receive Date: 20131007
  Receipt Date: 20131007
  Transmission Date: 20140711
  Serious: Yes (Other)
  Sender: FDA-Public Use
  Company Number: JP-B.I. PHARMACEUTICALS,INC./RIDGEFIELD-2013-BI-30798NB

PATIENT
  Age: 89 Year
  Sex: Female

DRUGS (1)
  1. TRAZENTA [Suspect]
     Route: 065

REACTIONS (1)
  - Ileus [Unknown]
